FAERS Safety Report 21392426 (Version 1)
Quarter: 2022Q3

REPORT INFORMATION
  Report Type: Spontaneous
  Country: US (occurrence: None)
  Receive Date: 20220928
  Receipt Date: 20220928
  Transmission Date: 20221027
  Serious: Yes (Disabling)
  Sender: FDA-Public Use
  Company Number: None

PATIENT
  Age: 73 Year
  Sex: Male
  Weight: 54.4 kg

DRUGS (1)
  1. ALTEPLASE [Suspect]
     Active Substance: ALTEPLASE
     Indication: Cerebrovascular accident
     Dosage: FREQUENCY : ONCE;?
     Route: 042
     Dates: start: 20220927

REACTIONS (3)
  - Haemorrhagic transformation stroke [None]
  - Product quality issue [None]
  - Post procedural haemorrhage [None]

NARRATIVE: CASE EVENT DATE: 20220927
